FAERS Safety Report 4340218-X (Version None)
Quarter: 2004Q1

REPORT INFORMATION
  Report Type: 
  Country: None (occurrence: None)
  Receive Date: 20040329
  Receipt Date: 20040205
  Transmission Date: 20041129
  Serious: No
  Sender: FDA-Public Use
  Company Number: 04P-163-0250680-00

PATIENT
  Age: 46 Year
  Sex: Female
  Weight: 43.9989 kg

DRUGS (10)
  1. HUMIRA [Suspect]
     Indication: JUVENILE ARTHRITIS
     Dosage: 40 MG, 1 IN 2 WK, SUBCUTANEOUS
     Route: 058
     Dates: start: 20040204
  2. GABAPENTIN [Concomitant]
  3. TIAGABINE HYDROCHLORIDE [Concomitant]
  4. PROPRANOLOL HYDROCHLORIDE [Concomitant]
  5. ALPRAZOLAM [Concomitant]
  6. OXYBUTYNIN [Concomitant]
  7. LOMOTIL [Concomitant]
  8. NITROFURANTOIN [Concomitant]
  9. CONJUGATED ESTROGEN [Concomitant]
  10. OXYCOCET [Concomitant]

REACTIONS (4)
  - HEADACHE [None]
  - INJECTION SITE BURNING [None]
  - INJECTION SITE PAIN [None]
  - NAUSEA [None]
